FAERS Safety Report 9014478 (Version 1)
Quarter: 2013Q1

REPORT INFORMATION
  Report Type: Spontaneous
  Country: FR (occurrence: FR)
  Receive Date: 20130115
  Receipt Date: 20130115
  Transmission Date: 20140127
  Serious: Yes (Life-Threatening, Hospitalization)
  Sender: FDA-Public Use
  Company Number: FR-GLAXOSMITHKLINE-B0857055A

PATIENT
  Age: 82 Year
  Sex: Female

DRUGS (1)
  1. ZINNAT [Suspect]
     Indication: ERYSIPELAS
     Dosage: 1INJ PER DAY
     Route: 030
     Dates: start: 20110926, end: 20110926

REACTIONS (2)
  - Anaphylactic shock [Recovered/Resolved]
  - Cardiac arrest [Recovered/Resolved]
